FAERS Safety Report 7376004-6 (Version None)
Quarter: 2011Q1

REPORT INFORMATION
  Report Type: 
  Country: None (occurrence: None)
  Receive Date: 20110317
  Receipt Date: 20110308
  Transmission Date: 20110831
  Serious: Yes (Other)
  Sender: FDA-Public Use
  Company Number: 2011GW000159

PATIENT
  Age: 74 Year
  Sex: Female
  Weight: 60 kg

DRUGS (4)
  1. ACE INHIBITORS [Concomitant]
  2. FLECAINIDE ACETATE [Suspect]
     Indication: ATRIAL TACHYCARDIA
     Dosage: PO
     Route: 048
  3. LIDOCAINE [Suspect]
     Indication: NERVE BLOCK
     Dosage: 400 MG;
  4. STATIN [Concomitant]

REACTIONS (8)
  - RADIUS FRACTURE [None]
  - NEUROTOXICITY [None]
  - CONFUSIONAL STATE [None]
  - POTENTIATING DRUG INTERACTION [None]
  - LOSS OF CONSCIOUSNESS [None]
  - EYE MOVEMENT DISORDER [None]
  - MYOCLONUS [None]
  - DISORIENTATION [None]
